FAERS Safety Report 19282467 (Version 4)
Quarter: 2021Q3

REPORT INFORMATION
  Report Type: Report from Study
  Country: JP (occurrence: JP)
  Receive Date: 20210521
  Receipt Date: 20210720
  Transmission Date: 20211014
  Serious: Yes (Hospitalization)
  Sender: FDA-Public Use
  Company Number: JP-ROCHE-2833989

PATIENT
  Age: 75 Year
  Sex: Female
  Weight: 46.3 kg

DRUGS (9)
  1. BAKUMONDOTO [Concomitant]
     Active Substance: HERBALS
     Indication: OSTEOPOROSIS
     Route: 048
     Dates: start: 20210206
  2. ATEZOLIZUMAB. [Suspect]
     Active Substance: ATEZOLIZUMAB
     Indication: HER2 NEGATIVE BREAST CANCER
  3. PACLITAXEL ALBUMIN [Suspect]
     Active Substance: PACLITAXEL
     Indication: HORMONE RECEPTOR POSITIVE BREAST CANCER
     Dosage: 85 MILLIGRAM/SQ. METER, DAY1, DAY8, DAY15
     Route: 042
     Dates: start: 20210202
  4. BEVACIZUMAB. [Suspect]
     Active Substance: BEVACIZUMAB
     Indication: HORMONE RECEPTOR POSITIVE BREAST CANCER
     Dosage: DAY1, DAY15
     Route: 042
     Dates: start: 20210202
  5. BEVACIZUMAB. [Suspect]
     Active Substance: BEVACIZUMAB
     Indication: HER2 NEGATIVE BREAST CANCER
  6. ATEZOLIZUMAB. [Suspect]
     Active Substance: ATEZOLIZUMAB
     Indication: HORMONE RECEPTOR POSITIVE BREAST CANCER
     Dosage: DAY1, DAY15
     Route: 042
     Dates: start: 20210202, end: 20210420
  7. PACLITAXEL ALBUMIN [Suspect]
     Active Substance: PACLITAXEL
     Indication: HER2 NEGATIVE BREAST CANCER
  8. EDIROL [Concomitant]
     Active Substance: ELDECALCITOL
     Indication: OSTEOPOROSIS
     Route: 048
     Dates: start: 20210309
  9. LOXOPROFEN NA [Concomitant]
     Active Substance: LOXOPROFEN SODIUM
     Indication: ARTHRALGIA
     Route: 061
     Dates: start: 20210402

REACTIONS (1)
  - Hyperthyroidism [Recovering/Resolving]

NARRATIVE: CASE EVENT DATE: 20210506
